FAERS Safety Report 11454011 (Version 1)
Quarter: 2015Q3

REPORT INFORMATION
  Report Type: Spontaneous
  Country: US (occurrence: US)
  Receive Date: 20150903
  Receipt Date: 20150903
  Transmission Date: 20151125
  Serious: No
  Sender: FDA-Public Use
  Company Number: US-CELGENEUS-USA-2015074253

PATIENT
  Age: 62 Year
  Sex: Female
  Weight: 96.25 kg

DRUGS (7)
  1. K-DUR [Concomitant]
     Active Substance: POTASSIUM CHLORIDE
     Indication: SUPPLEMENTATION THERAPY
     Route: 048
     Dates: start: 201410
  2. K-DUR [Concomitant]
     Active Substance: POTASSIUM CHLORIDE
     Indication: HYPERTENSION
  3. AMLODIPINE [Concomitant]
     Active Substance: AMLODIPINE BESYLATE
     Indication: HYPERTENSION
     Dosage: 12.5
     Route: 048
     Dates: start: 201306
  4. METAXALONE. [Concomitant]
     Active Substance: METAXALONE
     Indication: HYPERTENSION
     Route: 048
     Dates: start: 20130507
  5. HCTZ [Concomitant]
     Active Substance: HYDROCHLOROTHIAZIDE
     Indication: HYPERTENSION
     Route: 048
     Dates: start: 201306
  6. VITAMIN D [Concomitant]
     Active Substance: CHOLECALCIFEROL
     Indication: SUPPLEMENTATION THERAPY
     Dosage: 50,000 UNITS
     Route: 048
     Dates: start: 201312
  7. VIDAZA [Suspect]
     Active Substance: AZACITIDINE
     Indication: MYELODYSPLASTIC SYNDROME
     Dosage: 148.8 MILLIGRAM
     Route: 041
     Dates: start: 20141006

REACTIONS (1)
  - Blood bilirubin increased [Not Recovered/Not Resolved]

NARRATIVE: CASE EVENT DATE: 20150710
